FAERS Safety Report 8075225-7 (Version None)
Quarter: 2012Q1

REPORT INFORMATION
  Report Type: 
  Country: None (occurrence: None)
  Receive Date: 20120127
  Receipt Date: 20120114
  Transmission Date: 20120608
  Serious: Yes (Other)
  Sender: FDA-Public Use
  Company Number: US-PAR PHARMACEUTICAL, INC-2012SCPR003918

PATIENT

DRUGS (6)
  1. METRONIDAZOLE [Suspect]
     Dosage: 250 MG EVERY 6 HOURS
     Route: 048
  2. METRONIDAZOLE [Suspect]
     Indication: TRICHOMONIASIS
     Dosage: 25 MG, (DOSE 7)
     Route: 048
  3. METRONIDAZOLE [Suspect]
     Dosage: 100 MG (DOSE 9)
     Route: 048
  4. METRONIDAZOLE [Suspect]
     Dosage: 250 MG, (DOSE 10)
     Route: 048
  5. METRONIDAZOLE [Suspect]
     Dosage: 0.0025- 250 MG OVER 10 DOSES, WITH A 30-MINUTE INTERVAL BETWEEN EACH DOSE
     Route: 048
  6. METRONIDAZOLE [Suspect]
     Indication: IMMUNE TOLERANCE INDUCTION
     Dosage: UNK UNK, UNKNOWN
     Route: 065

REACTIONS (2)
  - TOXICITY TO VARIOUS AGENTS [None]
  - ANAPHYLACTIC REACTION [None]
